FAERS Safety Report 19424376 (Version 2)
Quarter: 2021Q3

REPORT INFORMATION
  Report Type: Spontaneous
  Country: US (occurrence: US)
  Receive Date: 20210616
  Receipt Date: 20210914
  Transmission Date: 20211014
  Serious: No
  Sender: FDA-Public Use
  Company Number: US-SK LIFE SCIENCE, INC.-SKPVG-2021-000511

PATIENT

DRUGS (7)
  1. TROKENDI [Concomitant]
     Active Substance: TOPIRAMATE
     Indication: PRODUCT USED FOR UNKNOWN INDICATION
     Route: 065
  2. XCOPRI [Suspect]
     Active Substance: CENOBAMATE
     Dosage: 12.5 MILLIGRAM, QD
     Route: 048
  3. XCOPRI [Suspect]
     Active Substance: CENOBAMATE
     Dosage: 50 MILLIGRAM, QD, AT NIGHT
     Route: 048
     Dates: start: 202105
  4. CITALOPRAM [Concomitant]
     Active Substance: CITALOPRAM HYDROBROMIDE
     Indication: SOMNOLENCE
     Dosage: 0.5 MILLIGRAM
     Route: 065
  5. APTIOM [Concomitant]
     Active Substance: ESLICARBAZEPINE ACETATE
     Indication: PRODUCT USED FOR UNKNOWN INDICATION
     Route: 065
  6. XCOPRI [Suspect]
     Active Substance: CENOBAMATE
     Indication: SEIZURE
     Dosage: 150 MILLIGRAM
     Route: 048
     Dates: start: 20210413
  7. XCOPRI [Suspect]
     Active Substance: CENOBAMATE
     Dosage: 25 MILLIGRAM, QD, AT NIGHT
     Route: 048

REACTIONS (11)
  - Incorrect dose administered [Recovered/Resolved]
  - Euphoric mood [Not Recovered/Not Resolved]
  - Intentional product use issue [Recovered/Resolved]
  - Fatigue [Unknown]
  - Product dose omission issue [Recovered/Resolved]
  - Confusional state [Not Recovered/Not Resolved]
  - Dizziness [Not Recovered/Not Resolved]
  - Dysarthria [Not Recovered/Not Resolved]
  - Contusion [Not Recovered/Not Resolved]
  - Seizure [Not Recovered/Not Resolved]
  - Feeling abnormal [Not Recovered/Not Resolved]

NARRATIVE: CASE EVENT DATE: 20210413
